FAERS Safety Report 15127210 (Version 1)
Quarter: 2020Q3

REPORT INFORMATION
  Report Type: Spontaneous
  Country: DE (occurrence: DE)
  Receive Date: 20180710
  Receipt Date: 20180710
  Transmission Date: 20201105
  Serious: Yes (Other)
  Sender: FDA-Public Use
  Company Number: IND-DE-009507513-1802DEU011156

PATIENT
  Age: 48 Year
  Sex: Female
  Weight: 62 kg

DRUGS (6)
  1. ARCOXIA [Interacting]
     Active Substance: ETORICOXIB
     Dosage: ON 3. DAY ? 1?
     Dates: start: 20170927, end: 20170929
  2. DEXAMETHASONE. [Concomitant]
     Active Substance: DEXAMETHASONE
     Dosage: UNK
     Dates: start: 20170927, end: 20170930
  3. PANTOPRAZOL HEXAL [Interacting]
     Active Substance: PANTOPRAZOLE
     Indication: PROPHYLAXIS AGAINST GASTROINTESTINAL ULCER
     Dosage: DAILY DOSE: 1 DF DOSAGE FORM EVERY DAY
     Dates: start: 20170927, end: 20170929
  4. ARCOXIA [Interacting]
     Active Substance: ETORICOXIB
     Dosage: DAILY DOSE: 1 DF DOSAGE FORM EVERY DAY
     Dates: start: 20170927, end: 20170929
  5. ARCOXIA [Suspect]
     Active Substance: ETORICOXIB
     Indication: INTERVERTEBRAL DISC DISORDER
     Dosage: ON 2. DAY ?3?
  6. NORFLEX [Interacting]
     Active Substance: ORPHENADRINE CITRATE
     Dosage: DAILY DOSE: 2 DF DOSAGE FORM EVERY DAY
     Dates: start: 20170927, end: 20170929

REACTIONS (21)
  - Asthenia [Unknown]
  - Dry mouth [Unknown]
  - Vision blurred [Unknown]
  - Heart rate increased [Unknown]
  - Taste disorder [Unknown]
  - Confusional state [Unknown]
  - Disorientation [Unknown]
  - Dizziness [Unknown]
  - Irritable bowel syndrome [Unknown]
  - Parosmia [Unknown]
  - Tremor [Unknown]
  - Fatigue [Unknown]
  - Anxiety [Unknown]
  - Hypoaesthesia [Unknown]
  - Disturbance in attention [Unknown]
  - Arthralgia [Unknown]
  - Hot flush [Unknown]
  - Paraesthesia [Unknown]
  - Memory impairment [Unknown]
  - Haemorrhoids [Unknown]
  - Dyspnoea [Unknown]

NARRATIVE: CASE EVENT DATE: 20170930
